FAERS Safety Report 5213886-8 (Version None)
Quarter: 2007Q1

REPORT INFORMATION
  Report Type: 
  Country: None (occurrence: None)
  Receive Date: 20070117
  Receipt Date: 20061121
  Transmission Date: 20070707
  Serious: Yes (Hospitalization)
  Sender: FDA-Public Use
  Company Number: 3778

PATIENT
  Age: 88 Year
  Sex: Male

DRUGS (2)
  1. WARFARIN (TABLET) [Suspect]
     Indication: ANTICOAGULANT THERAPY
     Dosage: 3.75 MG, PO
     Route: 048
  2. GATIFLOXACIN [Suspect]
     Indication: PNEUMONIA
     Dosage: 400 MG, PO
     Route: 048

REACTIONS (4)
  - DRUG INTERACTION [None]
  - INTERNATIONAL NORMALISED RATIO ABNORMAL [None]
  - PNEUMONIA [None]
  - PROTHROMBIN TIME PROLONGED [None]
